FAERS Safety Report 15641933 (Version 1)
Quarter: 2018Q4

REPORT INFORMATION
  Report Type: Spontaneous
  Country: FR (occurrence: FR)
  Receive Date: 20181121
  Receipt Date: 20181121
  Transmission Date: 20190205
  Serious: Yes (Hospitalization)
  Sender: FDA-Public Use
  Company Number: FR-TEVA-2018-FR-976667

PATIENT
  Age: 84 Year
  Sex: Female
  Weight: 64 kg

DRUGS (2)
  1. GENTAMICINE [Suspect]
     Active Substance: GENTAMICIN
     Indication: ENDOCARDITIS
     Dosage: 80 MILLIGRAM DAILY;
     Route: 065
     Dates: start: 20180926, end: 20180926
  2. AMOXICILLINE [Suspect]
     Active Substance: AMOXICILLIN
     Indication: ENDOCARDITIS
     Dosage: 12 GRAM DAILY;
     Route: 042
     Dates: start: 20180927, end: 20180930

REACTIONS (1)
  - Acute kidney injury [Recovering/Resolving]

NARRATIVE: CASE EVENT DATE: 20180930
